FAERS Safety Report 5773013-5 (Version None)
Quarter: 2008Q2

REPORT INFORMATION
  Report Type: 
  Country: None (occurrence: None)
  Receive Date: 20080613
  Receipt Date: 20080604
  Transmission Date: 20081010
  Serious: Yes (Other)
  Sender: FDA-Public Use
  Company Number: FR-PFIZER INC-2008047949

PATIENT
  Age: 78 Year
  Sex: Female

DRUGS (1)
  1. TAHOR [Suspect]

REACTIONS (5)
  - DYSPEPSIA [None]
  - LYMPHOMA [None]
  - OSTEOARTHRITIS [None]
  - TENDONITIS [None]
  - URTICARIA [None]
